FAERS Safety Report 5141672-6 (Version None)
Quarter: 2006Q4

REPORT INFORMATION
  Report Type: 
  Country: None (occurrence: None)
  Receive Date: 20061026
  Receipt Date: 20061010
  Transmission Date: 20070319
  Serious: Yes (Death)
  Sender: FDA-Public Use
  Company Number: 2006CT000785

PATIENT
  Age: 52 Year
  Sex: Female
  Weight: 56.6996 kg

DRUGS (7)
  1. VENTAVIS [Suspect]
     Indication: PULMONARY HYPERTENSION
     Dosage: 2.5 UG; 6XD; INH
     Route: 055
     Dates: start: 20060505, end: 20061009
  2. SILDENAFIL [Concomitant]
  3. MAGNESIUM OXIDE [Concomitant]
  4. PROCARDIA [Concomitant]
  5. VASOTEC [Concomitant]
  6. WARFARIN SODIUM [Concomitant]
  7. DIGOXIN [Concomitant]

REACTIONS (2)
  - CEREBRAL HAEMORRHAGE [None]
  - FALL [None]
